FAERS Safety Report 15888023 (Version 1)
Quarter: 2019Q1

REPORT INFORMATION
  Report Type: Spontaneous
  Country: US (occurrence: US)
  Receive Date: 20190130
  Receipt Date: 20190130
  Transmission Date: 20190417
  Serious: No
  Sender: FDA-Public Use
  Company Number: US-PFIZER INC-2018511074

PATIENT
  Age: 53 Year

DRUGS (3)
  1. REVATIO [Suspect]
     Active Substance: SILDENAFIL CITRATE
     Indication: GANGRENE
     Dosage: 50 MG, TWO TIMES A DAY (2.5 TABLETS, TWO TIMES A DAY)
     Route: 048
     Dates: start: 20181204
  2. REVATIO [Suspect]
     Active Substance: SILDENAFIL CITRATE
     Dosage: 50 MG, TWO TIMES A DAY (2.5 TABLETS, TWO TIMES A DAY)
     Route: 048
     Dates: start: 20190117
  3. REVATIO [Suspect]
     Active Substance: SILDENAFIL CITRATE
     Indication: RAYNAUD^S PHENOMENON
     Dosage: 50 MG, TWO TIMES A DAY (2.5 TABLETS, TWO TIMES A DAY)
     Route: 048
     Dates: start: 201608

REACTIONS (1)
  - Drug effective for unapproved indication [Unknown]

NARRATIVE: CASE EVENT DATE: 201608
